FAERS Safety Report 16425374 (Version 4)
Quarter: 2019Q2

REPORT INFORMATION
  Report Type: Report from Study
  Country: None (occurrence: CH)
  Receive Date: 20190613
  Receipt Date: 20190619
  Transmission Date: 20190711
  Serious: Yes (Death, Hospitalization)
  Sender: FDA-Public Use
  Company Number: CH-ABBVIE-19S-151-2817692-00

PATIENT
  Sex: Female

DRUGS (3)
  1. DUODOPA [Suspect]
     Active Substance: CARBIDOPA\LEVODOPA
     Indication: PARKINSON^S DISEASE
     Route: 050
     Dates: start: 20150407, end: 20180111
  2. DUODOPA [Suspect]
     Active Substance: CARBIDOPA\LEVODOPA
     Dosage: MD: 4 ML CRD1.7 ML/H CRN 1.7 ML/H ED: 0.5 ML ONE CASETTE PER DAY 24 H THERAPY
     Route: 050
     Dates: start: 20190417
  3. DUODOPA [Suspect]
     Active Substance: CARBIDOPA\LEVODOPA
     Dosage: MD 4 ML CRD 1.7 ML/H CRN 1.7 ML/H ED 1 ML 24 H THERAPY
     Route: 050
     Dates: start: 20180111, end: 20190417

REACTIONS (2)
  - Death [Fatal]
  - Decubitus ulcer [Unknown]
